FAERS Safety Report 4374234-9 (Version None)
Quarter: 2004Q2

REPORT INFORMATION
  Report Type: 
  Country: None (occurrence: None)
  Receive Date: 20040609
  Receipt Date: 20040519
  Transmission Date: 20050107
  Serious: Yes (Other)
  Sender: FDA-Public Use
  Company Number: DE-JNJFOC-20040500404

PATIENT

DRUGS (7)
  1. REOPRO [Suspect]
     Route: 042
  2. REOPRO [Suspect]
     Indication: ACUTE MYOCARDIAL INFARCTION
     Route: 042
  3. RETEPLASE [Suspect]
     Indication: ACUTE MYOCARDIAL INFARCTION
     Route: 042
  4. ASPIRIN [Concomitant]
  5. ASPIRIN [Concomitant]
  6. HEPARIN [Concomitant]
     Route: 042
  7. CLOPIDOGREL BISULFATE [Concomitant]

REACTIONS (2)
  - DRUG INTERACTION [None]
  - VENTRICULAR FIBRILLATION [None]
